FAERS Safety Report 7779672-X (Version None)
Quarter: 2011Q3

REPORT INFORMATION
  Report Type: 
  Country: None (occurrence: None)
  Receive Date: 20110927
  Receipt Date: 20110824
  Transmission Date: 20111222
  Serious: Yes (Hospitalization, Disabling, Other)
  Sender: FDA-Public Use
  Company Number: BR-BAYER-201016271LA

PATIENT
  Age: 45 Year
  Sex: Male

DRUGS (24)
  1. CARBAMAZEPINE [Concomitant]
     Indication: EMOTIONAL DISORDER
  2. IBUPROFEN [Concomitant]
     Indication: PYREXIA
     Dosage: 600 MG, PRN
     Route: 048
     Dates: start: 20110607
  3. CLONAZEPAM [Concomitant]
     Indication: INSOMNIA
     Dosage: 1 DF, PRN
     Route: 048
     Dates: start: 20070101, end: 20110823
  4. RANITIDINE [Concomitant]
     Indication: PROPHYLAXIS AGAINST GASTROINTESTINAL ULCER
     Dosage: 1 DF, QD
     Route: 048
     Dates: end: 20100101
  5. LAMOTRIGINE [Concomitant]
     Indication: CENTRAL NERVOUS SYSTEM LESION
     Dosage: 1 DF, QD, 30MG
     Route: 048
     Dates: start: 20080101, end: 20110101
  6. BETASERON [Suspect]
     Dosage: 9.6 MIU, QOD
     Route: 058
  7. BETASERON [Suspect]
     Dosage: UNK
  8. BETASERON [Suspect]
     Dosage: 1 ML, TIW
     Route: 058
  9. AZATIOPRIN [Concomitant]
     Indication: INFECTION PROPHYLAXIS
     Dosage: 100 MG, QD
     Route: 048
     Dates: start: 20080101
  10. CARBAMAZEPINE [Concomitant]
     Indication: CENTRAL NERVOUS SYSTEM LESION
     Dosage: 4 DF, QD
     Route: 048
     Dates: start: 20080101, end: 20110201
  11. IBUPROFEN [Concomitant]
     Indication: PREMEDICATION
     Dosage: 1 DF, QOD
     Route: 048
     Dates: start: 20070101
  12. CLOMIPRAMINE HCL [Concomitant]
     Indication: NERVE INJURY
     Dosage: 30 MG, QD
     Route: 048
     Dates: start: 20090101, end: 20110201
  13. CARBOLITIUM [Concomitant]
     Indication: SUICIDAL IDEATION
  14. ANTIDEPRESSANTS [Concomitant]
     Indication: BIPOLAR DISORDER
     Dosage: 1 DF, QD
     Route: 048
     Dates: start: 20080101
  15. CLOMIPRAMINE HCL [Concomitant]
     Indication: SEXUAL DYSFUNCTION
     Dosage: 50 MG, QD
     Route: 048
     Dates: start: 20100101, end: 20110201
  16. BETASERON [Suspect]
     Indication: RELAPSING-REMITTING MULTIPLE SCLEROSIS
     Dosage: BETAJECT
     Route: 058
     Dates: start: 20070302, end: 20091001
  17. BETASERON [Suspect]
     Route: 058
     Dates: start: 20100708
  18. AZATIOPRIN [Concomitant]
     Indication: BIPOLAR DISORDER
     Dosage: 1 TABLET / DAY - AS USED DOSE: UNK
     Route: 048
     Dates: start: 20070801, end: 20080801
  19. CARBAMAZEPINE [Concomitant]
     Indication: MULTIPLE SCLEROSIS RELAPSE
  20. BETASERON [Suspect]
     Dosage: BETAJECT
     Route: 058
     Dates: start: 20080101
  21. CARBAMAZEPINE [Concomitant]
     Indication: BIPOLAR DISORDER
     Dosage: 4 TABLETS / DAY
     Route: 048
     Dates: start: 20070801, end: 20100501
  22. CARBOLITIUM [Concomitant]
     Indication: BIPOLAR DISORDER
     Dosage: UNK
     Route: 048
     Dates: start: 20070101, end: 20080101
  23. CARBAMAZEPINE [Concomitant]
     Indication: DEPRESSION
     Dosage: 200MG, 4 DF, QD
     Route: 048
     Dates: start: 20090801
  24. CLONAZEPAM [Concomitant]
     Dosage: 1 DF, HS
     Route: 048
     Dates: start: 20090101, end: 20110201

REACTIONS (40)
  - ALOPECIA [None]
  - MOTOR DYSFUNCTION [None]
  - MUSCLE SPASMS [None]
  - UNEVALUABLE EVENT [None]
  - HEADACHE [None]
  - MULTIPLE SCLEROSIS RELAPSE [None]
  - MOBILITY DECREASED [None]
  - RENAL COLIC [None]
  - MALAISE [None]
  - INJECTION SITE DISCOMFORT [None]
  - PYREXIA [None]
  - MUSCULAR WEAKNESS [None]
  - SEXUAL DYSFUNCTION [None]
  - ERECTILE DYSFUNCTION [None]
  - VISUAL IMPAIRMENT [None]
  - INJECTION SITE HAEMATOMA [None]
  - HYPOTHERMIA [None]
  - BLINDNESS TRANSIENT [None]
  - PAIN [None]
  - FEELING ABNORMAL [None]
  - PARESIS [None]
  - QUADRIPLEGIA [None]
  - SCOTOMA [None]
  - MULTIPLE SCLEROSIS [None]
  - MUSCLE ATROPHY [None]
  - BLINDNESS [None]
  - CARDIOMEGALY [None]
  - BALANCE DISORDER [None]
  - DYSPNOEA [None]
  - INJECTION SITE PAIN [None]
  - INJECTION SITE RASH [None]
  - CHILLS [None]
  - SYNCOPE [None]
  - DEPRESSION [None]
  - CHEST DISCOMFORT [None]
  - LOSS OF CONSCIOUSNESS [None]
  - INJECTION SITE HAEMORRHAGE [None]
  - INJECTION SITE MASS [None]
  - INSOMNIA [None]
  - NERVOUSNESS [None]
